FAERS Safety Report 6724863-X (Version None)
Quarter: 2010Q2

REPORT INFORMATION
  Report Type: 
  Country: None (occurrence: None)
  Receive Date: 20100513
  Receipt Date: 20100513
  Transmission Date: 20101027
  Serious: Yes (Congenital Anomaly)
  Sender: FDA-Public Use
  Company Number: None

PATIENT
  Sex: Female
  Weight: 90.7194 kg

DRUGS (2)
  1. RISPERIDONE [Suspect]
     Indication: PSYCHOTIC DISORDER
     Dosage: 6MG QHS PO
     Route: 048
     Dates: start: 20010101, end: 20020101
  2. RISPERIDONE [Suspect]
     Indication: BIPOLAR DISORDER
     Dosage: 4MG QHS PO
     Route: 048
     Dates: start: 20050101, end: 20100101

REACTIONS (2)
  - MENSTRUAL DISORDER [None]
  - PAROSMIA [None]
